FAERS Safety Report 10290053 (Version 3)
Quarter: 2014Q4

REPORT INFORMATION
  Report Type: Spontaneous
  Country: PT (occurrence: PT)
  Receive Date: 20140710
  Receipt Date: 20141120
  Transmission Date: 20150528
  Serious: Yes (Hospitalization, Other)
  Sender: FDA-Public Use
  Company Number: PHHY2014PT083563

PATIENT
  Sex: Female
  Weight: 18.7 kg

DRUGS (5)
  1. VIT. E [Concomitant]
     Indication: PRODUCT USED FOR UNKNOWN INDICATION
     Dosage: UNK
     Route: 065
  2. EXJADE [Suspect]
     Active Substance: DEFERASIROX
     Indication: THALASSAEMIA BETA
     Dosage: 27MG/KG/DAY
     Route: 048
     Dates: start: 2012
  3. VITAMIN D [Concomitant]
     Active Substance: CHOLECALCIFEROL
     Indication: PRODUCT USED FOR UNKNOWN INDICATION
     Dosage: UNK
     Route: 065
  4. DESFERAL [Concomitant]
     Active Substance: DEFEROXAMINE MESYLATE
     Indication: PRODUCT USED FOR UNKNOWN INDICATION
     Dosage: 2X 40MG , WEEKLY
     Route: 058
  5. EXJADE [Suspect]
     Active Substance: DEFERASIROX
     Dosage: 10 MG/KG/DAY (DOSE DIVISION INTO 2 INTAKES )
     Route: 065
     Dates: start: 2013, end: 20140704

REACTIONS (8)
  - Gastric disorder [Unknown]
  - Pyrexia [Unknown]
  - Venous thrombosis [Unknown]
  - Transaminases abnormal [Unknown]
  - Face oedema [Not Recovered/Not Resolved]
  - Anaemia [Unknown]
  - Hepatitis viral [Unknown]
  - Vomiting [Unknown]

NARRATIVE: CASE EVENT DATE: 2012
